FAERS Safety Report 7509410-7 (Version None)
Quarter: 2011Q2

REPORT INFORMATION
  Report Type: 
  Country: None (occurrence: None)
  Receive Date: 20110527
  Receipt Date: 20110516
  Transmission Date: 20111010
  Serious: Yes (Disabling, Other)
  Sender: FDA-Public Use
  Company Number: PHHY2011DK41141

PATIENT
  Sex: Male

DRUGS (4)
  1. METHOTREXATE [Suspect]
     Dates: start: 20090201, end: 20090518
  2. FARMAGON [Concomitant]
     Indication: ACUTE MYELOID LEUKAEMIA
     Dosage: UNK
     Dates: start: 20090201, end: 20090518
  3. HYDROCORTISONE [Concomitant]
     Indication: ACUTE MYELOID LEUKAEMIA
     Dates: start: 20090201, end: 20090518
  4. CYTOSAR-U [Concomitant]
     Indication: ACUTE MYELOID LEUKAEMIA
     Dates: start: 20090201, end: 20090518

REACTIONS (10)
  - URINARY RETENTION [None]
  - GAIT DISTURBANCE [None]
  - HEADACHE [None]
  - FAECAL INCONTINENCE [None]
  - DYSAESTHESIA [None]
  - OEDEMA [None]
  - URINARY INCONTINENCE [None]
  - MUSCULAR WEAKNESS [None]
  - MOTOR DYSFUNCTION [None]
  - LEUKAEMIA RECURRENT [None]
